FAERS Safety Report 16760527 (Version 1)
Quarter: 2019Q4

REPORT INFORMATION
  Report Type: Spontaneous
  Country: US (occurrence: US)
  Receive Date: 20190830
  Receipt Date: 20190830
  Transmission Date: 20200122
  Serious: Yes (Other)
  Sender: FDA-Public Use
  Company Number: None

PATIENT
  Age: 63 Year
  Sex: Male
  Weight: 80.3 kg

DRUGS (1)
  1. NALTREXONE [Suspect]
     Active Substance: NALTREXONE
     Indication: ALCOHOLISM
     Dosage: ?          OTHER FREQUENCY:MONTHLY;?
     Route: 030
     Dates: start: 20160915, end: 20190613

REACTIONS (9)
  - Skin laceration [None]
  - Contusion [None]
  - Haematoma [None]
  - Pruritus [None]
  - Injection site haemorrhage [None]
  - Musculoskeletal pain [None]
  - Injection site bruising [None]
  - Needle issue [None]
  - Factor VIII inhibition [None]

NARRATIVE: CASE EVENT DATE: 20190611
